FAERS Safety Report 14374044 (Version 3)
Quarter: 2019Q3

REPORT INFORMATION
  Report Type: Report from Study
  Country: AR (occurrence: AR)
  Receive Date: 20180111
  Receipt Date: 20190902
  Transmission Date: 20191004
  Serious: Yes (Life-Threatening, Hospitalization, Disabling, Other)
  Sender: FDA-Public Use
  Company Number: AR-ROCHE-2052022

PATIENT
  Age: 49 Year
  Sex: Female

DRUGS (15)
  1. XOLAIR [Suspect]
     Active Substance: OMALIZUMAB
     Route: 065
     Dates: start: 20170629
  2. SIMETHICONE (DIMETHICONE) [Concomitant]
     Active Substance: DIMETHICONE
     Indication: PRODUCT USED FOR UNKNOWN INDICATION
     Route: 065
  3. MONTELUKAST [Concomitant]
     Active Substance: MONTELUKAST SODIUM
     Indication: PRODUCT USED FOR UNKNOWN INDICATION
     Route: 065
  4. XOLAIR [Suspect]
     Active Substance: OMALIZUMAB
     Indication: ASTHMA
     Route: 065
     Dates: start: 20151112
  5. INSULIN [Concomitant]
     Active Substance: INSULIN NOS
     Indication: PRODUCT USED FOR UNKNOWN INDICATION
     Route: 065
  6. SYMBICORT [Concomitant]
     Active Substance: BUDESONIDE\FORMOTEROL FUMARATE DIHYDRATE
     Indication: PRODUCT USED FOR UNKNOWN INDICATION
     Route: 065
  7. PREGABALIN. [Concomitant]
     Active Substance: PREGABALIN
     Indication: PRODUCT USED FOR UNKNOWN INDICATION
     Route: 065
  8. METHOTREXATE. [Concomitant]
     Active Substance: METHOTREXATE
     Indication: PRODUCT USED FOR UNKNOWN INDICATION
     Route: 065
  9. XOLAIR [Suspect]
     Active Substance: OMALIZUMAB
     Route: 065
     Dates: start: 20180108
  10. TRIMEBUTINE [Concomitant]
     Active Substance: TRIMEBUTINE
     Indication: PRODUCT USED FOR UNKNOWN INDICATION
     Route: 065
  11. FOLIC ACID. [Concomitant]
     Active Substance: FOLIC ACID
     Indication: PRODUCT USED FOR UNKNOWN INDICATION
     Route: 065
  12. XOLAIR [Suspect]
     Active Substance: OMALIZUMAB
     Dosage: (FREQUENCY REPORTED AS 2)
     Route: 065
     Dates: start: 20171116, end: 20171116
  13. XOLAIR [Suspect]
     Active Substance: OMALIZUMAB
     Dosage: 150 MG
     Route: 065
     Dates: start: 201706
  14. AMITRIPTYLINE [Concomitant]
     Active Substance: AMITRIPTYLINE
     Indication: PRODUCT USED FOR UNKNOWN INDICATION
     Route: 065
  15. TIOTROPIUM [Concomitant]
     Active Substance: TIOTROPIUM
     Indication: PRODUCT USED FOR UNKNOWN INDICATION
     Route: 065

REACTIONS (39)
  - Asthma [Recovered/Resolved]
  - Pancreatitis [Not Recovered/Not Resolved]
  - Large intestine polyp [Not Recovered/Not Resolved]
  - Diabetes mellitus inadequate control [Not Recovered/Not Resolved]
  - Asthmatic crisis [Unknown]
  - Diarrhoea [Not Recovered/Not Resolved]
  - Irritable bowel syndrome [Not Recovered/Not Resolved]
  - Mobility decreased [Recovered/Resolved]
  - Intestinal infarction [Recovering/Resolving]
  - Procedural pain [Recovering/Resolving]
  - Dyspnoea [Recovered/Resolved]
  - Pneumonia [Recovering/Resolving]
  - Speech sound disorder [Unknown]
  - Malaise [Not Recovered/Not Resolved]
  - Chronic obstructive pulmonary disease [Unknown]
  - Depressed mood [Not Recovered/Not Resolved]
  - Diverticulum [Unknown]
  - Somnolence [Recovered/Resolved]
  - Abdominal pain [Not Recovered/Not Resolved]
  - Stress [Unknown]
  - Hypersomnia [Unknown]
  - Memory impairment [Unknown]
  - Spinal pain [Not Recovered/Not Resolved]
  - Rheumatoid arthritis [Not Recovered/Not Resolved]
  - Colon cancer [Unknown]
  - Liver disorder [Unknown]
  - Inappropriate schedule of product administration [Unknown]
  - Feeling abnormal [Unknown]
  - Lung infection [Not Recovered/Not Resolved]
  - Anaemia [Unknown]
  - Leukaemia [Unknown]
  - Fall [Unknown]
  - Bronchitis [Unknown]
  - Intervertebral disc protrusion [Unknown]
  - Bronchospasm [Recovered/Resolved]
  - Pyrexia [Recovered/Resolved]
  - Gastritis [Unknown]
  - Nervousness [Unknown]
  - Osteoporosis [Not Recovered/Not Resolved]

NARRATIVE: CASE EVENT DATE: 2016
